FAERS Safety Report 13646542 (Version 6)
Quarter: 2018Q1

REPORT INFORMATION
  Report Type: Spontaneous
  Country: US (occurrence: US)
  Receive Date: 20170613
  Receipt Date: 20180222
  Transmission Date: 20180508
  Serious: Yes (Hospitalization)
  Sender: FDA-Public Use
  Company Number: US-PFIZER INC-2017253639

PATIENT
  Age: 72 Year
  Sex: Female
  Weight: 65.77 kg

DRUGS (3)
  1. IBRANCE [Suspect]
     Active Substance: PALBOCICLIB
     Dosage: 100 MG, CYCLIC (DAILY FOR 3 WEEKS OFF 1 WEEK OFF/DAILY FOR 21 DAYS WITH 7 DAYS OFF)
     Route: 048
     Dates: end: 20180218
  2. IBRANCE [Suspect]
     Active Substance: PALBOCICLIB
     Indication: INVASIVE LOBULAR BREAST CARCINOMA
     Dosage: 100 MG, CYCLIC (DAILY FOR 3 WEEKS OFF 1 WEEK OFF/DAILY FOR 21 DAYS WITH 7 DAYS OFF)
     Route: 048
     Dates: start: 201601
  3. LETROZOLE. [Concomitant]
     Active Substance: LETROZOLE
     Indication: INVASIVE LOBULAR BREAST CARCINOMA
     Dosage: 2.5 MG, ONCE DAILY
     Dates: start: 201601

REACTIONS (11)
  - Cellulitis orbital [Unknown]
  - Malaise [Unknown]
  - Skin disorder [Unknown]
  - Sinusitis [Unknown]
  - Arthritis [Unknown]
  - Spondylitis [Unknown]
  - Ear infection [Unknown]
  - Tumour marker abnormal [Not Recovered/Not Resolved]
  - Weight decreased [Unknown]
  - Diarrhoea [Unknown]
  - Opportunistic infection [Unknown]
